FAERS Safety Report 20140205 (Version 1)
Quarter: 2021Q4

REPORT INFORMATION
  Report Type: Spontaneous
  Country: US (occurrence: None)
  Receive Date: 20211202
  Receipt Date: 20211202
  Transmission Date: 20220303
  Serious: Yes (Hospitalization)
  Sender: FDA-Public Use
  Company Number: None

PATIENT
  Age: 22 Year
  Sex: Male
  Weight: 103 kg

DRUGS (6)
  1. DOXORUBICIN HYDROCHLORIDE [Suspect]
     Active Substance: DOXORUBICIN HYDROCHLORIDE
     Dates: end: 20211124
  2. DEXAMETHASONE [Suspect]
     Active Substance: DEXAMETHASONE
     Dates: end: 20211123
  3. METHOTREXATE [Suspect]
     Active Substance: METHOTREXATE
     Dates: end: 20211117
  4. ONCASPAR [Suspect]
     Active Substance: PEGASPARGASE
     Dates: end: 20211122
  5. RITUXIMAB [Suspect]
     Active Substance: RITUXIMAB
     Dates: end: 20211124
  6. VINCRISTINE SULFATE [Suspect]
     Active Substance: VINCRISTINE SULFATE
     Dates: end: 20211124

REACTIONS (22)
  - Vomiting [None]
  - Dyspnoea [None]
  - Hypotension [None]
  - Pain [None]
  - Abdominal pain [None]
  - Oropharyngeal pain [None]
  - Neutropenia [None]
  - Anaemia [None]
  - Thrombocytopenia [None]
  - Tachycardia [None]
  - Tachypnoea [None]
  - Metabolic acidosis [None]
  - Gastrointestinal oedema [None]
  - Gallbladder enlargement [None]
  - Bacterial infection [None]
  - Pancytopenia [None]
  - Renal impairment [None]
  - Hypoglycaemia [None]
  - Hepatomegaly [None]
  - Hepatic lesion [None]
  - Coagulopathy [None]
  - Dialysis [None]

NARRATIVE: CASE EVENT DATE: 20211126
